FAERS Safety Report 7263801-0 (Version None)
Quarter: 2011Q1

REPORT INFORMATION
  Report Type: 
  Country: None (occurrence: None)
  Receive Date: 20110130
  Receipt Date: 20101028
  Transmission Date: 20110831
  Serious: No
  Sender: FDA-Public Use
  Company Number: US-ABBOTT-10P-163-0682377-00

PATIENT
  Sex: Female
  Weight: 76.272 kg

DRUGS (10)
  1. LEXAPRO [Concomitant]
     Indication: STRESS
  2. AMBIEN [Concomitant]
     Indication: INSOMNIA
  3. XANAX [Concomitant]
     Indication: ANXIETY
  4. OXYCODONE [Concomitant]
     Indication: PAIN
  5. LEFLUNOMIDE [Concomitant]
     Indication: ARTHRITIS
  6. METOPROLOL [Concomitant]
     Indication: BLOOD PRESSURE
  7. HUMIRA [Suspect]
  8. HUMIRA [Suspect]
     Indication: RHEUMATOID ARTHRITIS
     Dates: start: 20010101
  9. FUROSEMIDE [Concomitant]
     Indication: BLOOD PRESSURE
  10. METFORMIN [Concomitant]
     Indication: DIABETES MELLITUS

REACTIONS (2)
  - BLOOD URINE PRESENT [None]
  - NASOPHARYNGITIS [None]
